FAERS Safety Report 9816378 (Version 1)
Quarter: 2014Q1

REPORT INFORMATION
  Report Type: Spontaneous
  Country: US (occurrence: US)
  Receive Date: 20140114
  Receipt Date: 20140114
  Transmission Date: 20141002
  Serious: Yes (Death)
  Sender: FDA-Public Use
  Company Number: US-PFIZER INC-2014007171

PATIENT
  Age: 55 Year
  Sex: Female

DRUGS (6)
  1. FENTANYL [Suspect]
     Dosage: UNK
  2. MORPHINE SULFATE [Suspect]
     Dosage: UNK
  3. OXYCODONE HYDROCHLORIDE [Suspect]
     Dosage: UNK
  4. METAXALONE [Suspect]
     Dosage: UNK
  5. DIPHENHYDRAMINE [Suspect]
     Dosage: UNK
  6. TOPIRAMATE [Suspect]
     Dosage: UNK

REACTIONS (1)
  - Death [Fatal]
